FAERS Safety Report 5852842-3 (Version None)
Quarter: 2008Q3

REPORT INFORMATION
  Report Type: 
  Country: None (occurrence: None)
  Receive Date: 20080821
  Receipt Date: 20080811
  Transmission Date: 20090109
  Serious: Yes (Hospitalization)
  Sender: FDA-Public Use
  Company Number: PT-ABBOTT-08P-130-0454233-00

PATIENT
  Sex: Female
  Weight: 69 kg

DRUGS (5)
  1. HUMIRA [Suspect]
     Indication: CROHN'S DISEASE
     Route: 058
     Dates: start: 20070723, end: 20080428
  2. HUMIRA [Suspect]
     Route: 058
     Dates: start: 20080529
  3. PREDNISOLONE [Concomitant]
     Indication: ARTHRITIS
     Route: 048
     Dates: start: 20080417
  4. AZATHIOPRINE [Concomitant]
     Indication: CROHN'S DISEASE
     Route: 048
     Dates: start: 20040608
  5. FEMODENE [Concomitant]
     Indication: CONTRACEPTION
     Route: 048
     Dates: start: 19950101

REACTIONS (1)
  - ARTHRITIS [None]
